FAERS Safety Report 6021158-7 (Version None)
Quarter: 2008Q4

REPORT INFORMATION
  Report Type: 
  Country: None (occurrence: None)
  Receive Date: 20081229
  Receipt Date: 20081215
  Transmission Date: 20090506
  Serious: Yes (Death)
  Sender: FDA-Public Use
  Company Number: US-PFIZER INC-2008153774

PATIENT

DRUGS (6)
  1. PREGABALIN [Suspect]
  2. AMITRIPTYLINE [Suspect]
  3. OPIOIDS [Suspect]
  4. OXYCODONE [Suspect]
  5. CYCLOBENZAPRINE [Suspect]
  6. PAROXETINE [Suspect]

REACTIONS (3)
  - CARDIAC ARREST [None]
  - DEATH [None]
  - RESPIRATORY ARREST [None]
